FAERS Safety Report 23953548 (Version 1)
Quarter: 2024Q2

REPORT INFORMATION
  Report Type: Report from Study
  Country: US (occurrence: US)
  Receive Date: 20240608
  Receipt Date: 20240608
  Transmission Date: 20240716
  Serious: Yes (Other)
  Sender: FDA-Public Use
  Company Number: US-UCBSA-2023056614

PATIENT
  Sex: Female

DRUGS (1)
  1. BRIVARACETAM [Suspect]
     Active Substance: BRIVARACETAM
     Indication: Seizure
     Dosage: 100MG-1 TAB AM + 1.5 TAB PM

REACTIONS (8)
  - Skull fracture [Unknown]
  - Aphonia [Not Recovered/Not Resolved]
  - Illness [Not Recovered/Not Resolved]
  - Accident [Unknown]
  - Loss of personal independence in daily activities [Unknown]
  - Stress [Unknown]
  - Product use issue [Unknown]
  - Inability to afford medication [Unknown]
